FAERS Safety Report 4315363-5 (Version None)
Quarter: 2004Q1

REPORT INFORMATION
  Report Type: 
  Country: None (occurrence: None)
  Receive Date: 20040309
  Receipt Date: 20040224
  Transmission Date: 20041129
  Serious: Yes (Hospitalization)
  Sender: FDA-Public Use
  Company Number: USA040260130

PATIENT
  Age: 54 Year
  Sex: Female

DRUGS (1)
  1. GEMZAR [Suspect]
     Indication: OVARIAN EPITHELIAL CANCER STAGE III
     Dosage: 1000 MG/M2/1 WEEK
     Route: 042
     Dates: end: 20040218

REACTIONS (6)
  - CYST [None]
  - FEBRILE NEUTROPENIA [None]
  - JOINT EFFUSION [None]
  - OEDEMA PERIPHERAL [None]
  - PAIN [None]
  - SEROSITIS [None]
